FAERS Safety Report 20412266 (Version 1)
Quarter: 2022Q1

REPORT INFORMATION
  Report Type: Spontaneous
  Country: US (occurrence: US)
  Receive Date: 20220201
  Receipt Date: 20220201
  Transmission Date: 20220423
  Serious: No
  Sender: FDA-Public Use
  Company Number: US-PFIZER INC-202101792310

PATIENT
  Age: 58 Year
  Sex: Female
  Weight: 80.726 kg

DRUGS (1)
  1. METHYLPREDNISOLONE [Suspect]
     Active Substance: METHYLPREDNISOLONE
     Dosage: UNK
     Dates: start: 202110

REACTIONS (3)
  - Intentional product misuse [Unknown]
  - Product physical issue [Unknown]
  - Dysgeusia [Unknown]
